FAERS Safety Report 5845062-X (Version None)
Quarter: 2008Q3

REPORT INFORMATION
  Report Type: 
  Country: None (occurrence: None)
  Receive Date: 20080814
  Receipt Date: 20080812
  Transmission Date: 20090109
  Serious: Yes (Other)
  Sender: FDA-Public Use
  Company Number: CN-ASTRAZENECA-2008AP06133

PATIENT
  Age: 45 Year
  Sex: Male

DRUGS (1)
  1. ROPIVACAINE [Suspect]
     Indication: ANAESTHESIA

REACTIONS (3)
  - CONVULSION [None]
  - DRUG TOXICITY [None]
  - MUSCLE SPASMS [None]
